FAERS Safety Report 11878123 (Version 1)
Quarter: 2015Q4

REPORT INFORMATION
  Report Type: Spontaneous
  Country: US (occurrence: None)
  Receive Date: 20151229
  Receipt Date: 20151229
  Transmission Date: 20160305
  Serious: Yes (Other)
  Sender: FDA-Public Use
  Company Number: None

PATIENT
  Age: 28 Year
  Sex: Male
  Weight: 79 kg

DRUGS (16)
  1. IFOSPHAMIDE [Suspect]
     Active Substance: IFOSFAMIDE
     Indication: CENTRAL NERVOUS SYSTEM LYMPHOMA
     Route: 042
  2. FUROSEMIDE. [Concomitant]
     Active Substance: FUROSEMIDE
  3. HYDROMORPHONE [Concomitant]
     Active Substance: HYDROMORPHONE
  4. ALLOPURINOL. [Concomitant]
     Active Substance: ALLOPURINOL
  5. METHYLENE BLUE. [Concomitant]
     Active Substance: METHYLENE BLUE
  6. MIRALAX [Concomitant]
     Active Substance: POLYETHYLENE GLYCOL 3350
  7. THIAMINE. [Concomitant]
     Active Substance: THIAMINE
  8. LEVOFLOXACIN. [Concomitant]
     Active Substance: LEVOFLOXACIN
  9. METHYLPREDNISOLONE. [Concomitant]
     Active Substance: METHYLPREDNISOLONE
  10. ACYCLOVIR. [Concomitant]
     Active Substance: ACYCLOVIR
  11. ANIDULAFUNGIN [Concomitant]
     Active Substance: ANIDULAFUNGIN
  12. DEXAMETHASONE. [Concomitant]
     Active Substance: DEXAMETHASONE
  13. HEPARIN [Concomitant]
     Active Substance: HEPARIN SODIUM
  14. PANTOPRAZOLE [Concomitant]
     Active Substance: PANTOPRAZOLE SODIUM
  15. CARBOPLATIN. [Concomitant]
     Active Substance: CARBOPLATIN
  16. GRANISETRON [Concomitant]
     Active Substance: GRANISETRON

REACTIONS (2)
  - Delusion [None]
  - Confusional state [None]

NARRATIVE: CASE EVENT DATE: 20151117
